FAERS Safety Report 6656004-1 (Version None)
Quarter: 2010Q1

REPORT INFORMATION
  Report Type: 
  Country: None (occurrence: None)
  Receive Date: 20100329
  Receipt Date: 20100317
  Transmission Date: 20100710
  Serious: Yes (Other)
  Sender: FDA-Public Use
  Company Number: BR-PFIZER INC-2009314797

PATIENT
  Age: 60 Year
  Sex: Male
  Weight: 70 kg

DRUGS (3)
  1. DETRUSITOL [Suspect]
     Indication: HYPERTONIC BLADDER
     Dosage: 2 MG, 2X/DAY, EVERY 12 HOURS
     Route: 048
     Dates: start: 20070605
  2. OXYBUTYNIN [Suspect]
     Dosage: 5 MG, 3X/DAY, EVERY 8 HOURS
     Route: 048
     Dates: end: 20070605
  3. SIMVASTATIN [Concomitant]
     Dosage: 20 MG, DAILY

REACTIONS (5)
  - DRUG INEFFECTIVE [None]
  - DRY MOUTH [None]
  - HYPERTONIC BLADDER [None]
  - MICTURITION URGENCY [None]
  - UROGRAM ABNORMAL [None]
